FAERS Safety Report 9589611 (Version 2)
Quarter: 2013Q4

REPORT INFORMATION
  Report Type: Spontaneous
  Country: US (occurrence: US)
  Receive Date: 20131003
  Receipt Date: 20131003
  Transmission Date: 20140711
  Serious: No
  Sender: FDA-Public Use
  Company Number: US-AMGEN-USASP2012068750

PATIENT
  Age: 65 Year
  Sex: Female
  Weight: 78.01 kg

DRUGS (7)
  1. ENBREL [Suspect]
     Indication: PSORIASIS
     Dosage: 50 MG, BIWEEKLY
     Route: 058
     Dates: start: 200907, end: 201208
  2. SYNTHROID [Concomitant]
     Dosage: 100 MUG, UNK
     Route: 048
  3. LOVASTATIN [Concomitant]
     Dosage: 10 MG, UNK
     Route: 048
  4. THYROXIN [Concomitant]
     Dosage: UNK
     Route: 048
  5. TIZANIDINE HYDROCHLORIDE [Concomitant]
     Dosage: 4 MG, UNK
     Route: 048
  6. HYDROCHLOROTHIAZIDE [Concomitant]
     Dosage: UNK
     Route: 048
  7. PROTOPIC [Concomitant]
     Dosage: UNK
     Route: 061

REACTIONS (3)
  - Gastrointestinal infection [Not Recovered/Not Resolved]
  - Pyrexia [Not Recovered/Not Resolved]
  - Headache [Not Recovered/Not Resolved]
